FAERS Safety Report 20814056 (Version 2)
Quarter: 2022Q3

REPORT INFORMATION
  Report Type: Report from Study
  Country: JP (occurrence: JP)
  Receive Date: 20220511
  Receipt Date: 20220719
  Transmission Date: 20221027
  Serious: Yes (Hospitalization, Other)
  Sender: FDA-Public Use
  Company Number: JP-GLAXOSMITHKLINE-JP2022JPN074778

PATIENT

DRUGS (20)
  1. ACYCLOVIR [Suspect]
     Active Substance: ACYCLOVIR
     Indication: Herpes zoster
     Dosage: 250 MG, TID
     Route: 041
     Dates: start: 20220304, end: 20220318
  2. ACYCLOVIR [Suspect]
     Active Substance: ACYCLOVIR
     Dosage: 350MG, 3X
     Route: 041
  3. INSULIN ASPART RECOMBINANT [Concomitant]
     Active Substance: INSULIN ASPART
     Indication: Diabetes mellitus
     Dosage: UNK
     Dates: start: 20220303
  4. INSULIN DEGLUDEC (GENETICAL RECOMBINATION) [Concomitant]
     Indication: Diabetes mellitus
     Dosage: UNK
     Dates: start: 20220303, end: 20220304
  5. NEUROTROPIN (JAPAN) [Concomitant]
     Indication: Herpes zoster
     Dosage: UNK
     Dates: start: 20220305, end: 20220323
  6. METFORMIN HYDROCHLORIDE [Concomitant]
     Active Substance: METFORMIN HYDROCHLORIDE
     Indication: Diabetes mellitus
     Dosage: UNK
     Dates: start: 20220304
  7. TENELIGLIPTIN HYDROBROMIDE HYDRATE [Concomitant]
     Active Substance: TENELIGLIPTIN HYDROBROMIDE HYDRATE
     Indication: Diabetes mellitus
     Dosage: UNK
     Dates: start: 201710
  8. TOARASET COMBINATION TABLETS [Concomitant]
     Indication: Herpes zoster
     Dosage: UNK
     Dates: start: 20220302, end: 20220323
  9. ACETAMINOPHEN [Concomitant]
     Active Substance: ACETAMINOPHEN
     Indication: Herpes zoster
     Dosage: UNK
     Route: 048
     Dates: start: 20220226, end: 20220317
  10. ACETAMINOPHEN [Concomitant]
     Active Substance: ACETAMINOPHEN
     Indication: Herpes zoster
     Dosage: UNK
     Route: 042
     Dates: start: 20220305, end: 20220316
  11. NIFEDIPINE [Concomitant]
     Active Substance: NIFEDIPINE
     Indication: Hypertension
     Dosage: UNK
     Dates: start: 20220310, end: 20220311
  12. UREA [Concomitant]
     Active Substance: UREA
     Indication: Herpes zoster
     Dosage: UNK
     Dates: start: 20220302, end: 20220323
  13. REBAMIPIDE [Concomitant]
     Active Substance: REBAMIPIDE
     Indication: Gastritis prophylaxis
     Dosage: UNK
     Dates: start: 20220304, end: 20220304
  14. LOXOPROFEN SODIUM DIHYDRATE [Concomitant]
     Active Substance: LOXOPROFEN SODIUM DIHYDRATE
     Indication: Herpes zoster
     Dosage: UNK
     Dates: start: 20220304, end: 20220304
  15. AZILSARTAN KAMEDOXOMIL [Concomitant]
     Active Substance: AZILSARTAN KAMEDOXOMIL
     Indication: Hypertension
     Dosage: UNK
     Dates: start: 20220309, end: 20220401
  16. KETOPROFEN [Concomitant]
     Active Substance: KETOPROFEN
     Indication: Plasma cell myeloma
     Dosage: UNK
     Dates: start: 20211222
  17. SUPROFEN [Concomitant]
     Active Substance: SUPROFEN
     Indication: Herpes zoster
     Dosage: UNK
     Dates: start: 20220302, end: 20220323
  18. PREGABALIN [Concomitant]
     Active Substance: PREGABALIN
     Indication: Herpes zoster
     Dosage: UNK
     Dates: start: 20220306, end: 20220323
  19. METHYLCOBALAMIN [Concomitant]
     Active Substance: METHYLCOBALAMIN
     Indication: Herpes zoster
     Dosage: UNK
     Dates: start: 20220306, end: 20220323
  20. ESOMEPRAZOLE MAGNESIUM [Concomitant]
     Active Substance: ESOMEPRAZOLE MAGNESIUM
     Indication: Gastritis prophylaxis
     Dosage: UNK
     Dates: start: 201802

REACTIONS (4)
  - Pneumonia [Recovered/Resolved]
  - Pyrexia [Unknown]
  - Neutrophil count decreased [Unknown]
  - Prescribed underdose [Unknown]

NARRATIVE: CASE EVENT DATE: 20220316
